FAERS Safety Report 20849957 (Version 1)
Quarter: 2022Q2

REPORT INFORMATION
  Report Type: Spontaneous
  Country: CA (occurrence: CA)
  Receive Date: 20220519
  Receipt Date: 20220519
  Transmission Date: 20220721
  Serious: Yes (Other)
  Sender: FDA-Public Use
  Company Number: CA-ORG100014127-2022000539

PATIENT
  Age: 41 Year
  Sex: Female

DRUGS (4)
  1. LYSODREN [Suspect]
     Active Substance: MITOTANE
     Indication: Adrenocortical carcinoma
     Dosage: 05 TABLETS PER DAY
     Dates: start: 20200812
  2. LYSODREN [Suspect]
     Active Substance: MITOTANE
     Indication: Adrenocortical carcinoma
     Dosage: ALTERNATING 05/06 TABLETS PER DAY
     Dates: start: 2022, end: 2022
  3. LYSODREN [Suspect]
     Active Substance: MITOTANE
     Indication: Adrenocortical carcinoma
     Dosage: ALTERNATING 06/07 TABLETS PER DAY
     Dates: start: 2022, end: 2022
  4. LYSODREN [Suspect]
     Active Substance: MITOTANE
     Indication: Adrenocortical carcinoma
     Dosage: 07 TABLETS PER DAY
     Dates: start: 2022

REACTIONS (1)
  - Malignant neoplasm progression [Not Recovered/Not Resolved]

NARRATIVE: CASE EVENT DATE: 20220101
